FAERS Safety Report 4845407-3 (Version None)
Quarter: 2005Q4

REPORT INFORMATION
  Report Type: 
  Country: None (occurrence: None)
  Receive Date: 20051125
  Receipt Date: 20051118
  Transmission Date: 20060501
  Serious: Yes (Hospitalization)
  Sender: FDA-Public Use
  Company Number: TPG2005A00451

PATIENT
  Age: 79 Year
  Sex: Male

DRUGS (8)
  1. LEUPROLIDE ACETATE [Suspect]
     Indication: PROSTATE CANCER
     Dosage: 11.25 MG (11.25 MG, 1 IN 3 M) INJECTION
     Dates: start: 20011122, end: 20020516
  2. TELTONAL 480 FT (HERBAL PREPARATION) (TABLETS) [Concomitant]
  3. OSTEOPLUS (CALCIUM CARBONATE) (2500 MILLIGRAM, TABLETS) [Concomitant]
  4. MAGNESIUM VERLA DRAGEES (MAGNESIUM VERLA /00648601/) (DRAGEES) [Concomitant]
  5. BELOC-ZOC MITE (METOPROLOL SUCCINATE) (47.5 MILLIGRAM, SUSTAINED-RELEA [Concomitant]
  6. BECONASE AQUOSUM (BECLOMETASONE DIPROPIONATE) (SUSPENSION) [Concomitant]
  7. AMPHOTERICIN B [Concomitant]
  8. FLUMID (FLUTAMIDE) (250 MILLIGRAM, TABLETS) [Concomitant]

REACTIONS (6)
  - FAECAL INCONTINENCE [None]
  - HYPOACUSIS [None]
  - KYPHOSIS [None]
  - POLYNEUROPATHY CHRONIC [None]
  - SICCA SYNDROME [None]
  - THERAPY NON-RESPONDER [None]
